FAERS Safety Report 6875491-7 (Version None)
Quarter: 2010Q3

REPORT INFORMATION
  Report Type: 
  Country: None (occurrence: None)
  Receive Date: 20100727
  Receipt Date: 20100716
  Transmission Date: 20110219
  Serious: Yes (Other)
  Sender: FDA-Public Use
  Company Number: US-JNJFOC-20100504830

PATIENT
  Sex: Female

DRUGS (4)
  1. ELMIRON [Suspect]
     Indication: CYSTITIS INTERSTITIAL
     Route: 048
  2. ELMIRON [Suspect]
     Route: 048
  3. CLARITIN [Concomitant]
     Indication: MULTIPLE ALLERGIES
     Route: 065
  4. TYLOX (OXYCODONE AND ACETAMINOPHEN) [Concomitant]
     Indication: BLADDER PAIN
     Route: 065

REACTIONS (10)
  - ANXIETY [None]
  - GASTROOESOPHAGEAL REFLUX DISEASE [None]
  - HERPES ZOSTER [None]
  - INAPPROPRIATE SCHEDULE OF DRUG ADMINISTRATION [None]
  - INSOMNIA [None]
  - OESOPHAGITIS [None]
  - RED BLOOD CELLS URINE [None]
  - RHINITIS [None]
  - SENSATION OF FOREIGN BODY [None]
  - TREATMENT NONCOMPLIANCE [None]
